FAERS Safety Report 26091568 (Version 1)
Quarter: 2025Q4

REPORT INFORMATION
  Report Type: Spontaneous
  Country: US (occurrence: US)
  Receive Date: 20251126
  Receipt Date: 20251126
  Transmission Date: 20260117
  Serious: Yes (Other)
  Sender: SANOFI AVENTIS
  Company Number: US-SA-2025SA352638

PATIENT
  Age: 12 Year
  Sex: Male

DRUGS (1)
  1. DUPIXENT [Suspect]
     Active Substance: DUPILUMAB
     Indication: Dermatitis atopic
     Dosage: 200 MG, QOW
     Route: 058
     Dates: start: 202511

REACTIONS (5)
  - Immunodeficiency [Unknown]
  - Genital burning sensation [Unknown]
  - Pruritus [Unknown]
  - Fungal skin infection [Unknown]
  - Burning sensation [Unknown]

NARRATIVE: CASE EVENT DATE: 20251101
